FAERS Safety Report 5069896-7 (Version None)
Quarter: 2006Q3

REPORT INFORMATION
  Report Type: 
  Country: None (occurrence: None)
  Receive Date: 20060803
  Receipt Date: 20060724
  Transmission Date: 20061208
  Serious: Yes (Life-Threatening, Other)
  Sender: FDA-Public Use
  Company Number: JP-BRISTOL-MYERS SQUIBB COMPANY-13456355

PATIENT
  Sex: Female

DRUGS (2)
  1. TAXOL [Suspect]
     Indication: METASTASES TO LIVER
     Route: 041
     Dates: start: 20060201, end: 20060201
  2. MEDROXYPROGESTERONE ACETATE [Concomitant]

REACTIONS (2)
  - COMA HEPATIC [None]
  - HEPATIC FAILURE [None]
